FAERS Safety Report 16650879 (Version 4)
Quarter: 2020Q4

REPORT INFORMATION
  Report Type: Spontaneous
  Country: DE (occurrence: DE)
  Receive Date: 20190731
  Receipt Date: 20201022
  Transmission Date: 20210113
  Serious: Yes (Hospitalization, Other)
  Sender: FDA-Public Use
  Company Number: DE-TEVA-2019-DE-1085118

PATIENT
  Age: 54 Year
  Sex: Female
  Weight: 92 kg

DRUGS (12)
  1. VALSARTAN AAA PHARMA [Suspect]
     Active Substance: VALSARTAN
     Indication: HYPERTENSION
     Route: 048
     Dates: start: 201707, end: 201802
  2. AVONEX [Concomitant]
     Active Substance: INTERFERON BETA-1A
     Dosage: 0-1-0, LONG-TERM THERAPY
     Route: 058
     Dates: start: 2008
  3. FAMPYRA [Concomitant]
     Active Substance: DALFAMPRIDINE
     Dosage: 20 MILLIGRAM DAILY; 1-0-1, LONG-TERM THERAPY
     Route: 048
     Dates: start: 2014
  4. GABAPENTIN. [Concomitant]
     Active Substance: GABAPENTIN
     Dosage: 1500 MILLIGRAM DAILY; 1-1-1, LONG-TERM THERAPY
     Route: 048
     Dates: start: 2008
  5. OPIPRAMOL [Concomitant]
     Active Substance: OPIPRAMOL
     Dosage: 50 MILLIGRAM DAILY; 0-0-1, LONG-TERM THERAPY
     Route: 048
     Dates: start: 2008
  6. CALCIUM D3 [Concomitant]
     Active Substance: CALCIUM\CHOLECALCIFEROL
     Dosage: 750 MILLIGRAM DAILY; 0-1-0, LONG-TERM THERAPY
     Route: 048
     Dates: start: 2008
  7. FOLIC ACID. [Concomitant]
     Active Substance: FOLIC ACID
     Dosage: 600 MICROGRAM DAILY; 1-0-0, LONG-TERM THERAPY
     Route: 048
     Dates: start: 2008
  8. VALSARTAN 1A PHARMA [Suspect]
     Active Substance: VALSARTAN
     Indication: HYPERTENSION
     Dosage: 40 MILLIGRAM DAILY;
     Route: 048
     Dates: start: 201607, end: 201607
  9. VALSARTAN ABZ 80MG FILMTABLETTEN [Suspect]
     Active Substance: VALSARTAN
     Indication: HYPERTENSION
     Dosage: 40 MILLIGRAM DAILY;
     Route: 048
     Dates: start: 20160729, end: 20180710
  10. VESIKUR [Concomitant]
     Active Substance: SOLIFENACIN SUCCINATE
     Dosage: 10 MILLIGRAM DAILY; 1-0-1, LONG-TERM THERAPY
     Route: 048
     Dates: start: 2010
  11. MAGNESIUM [Concomitant]
     Active Substance: MAGNESIUM
     Dosage: 500 MILLIGRAM DAILY; 0-0-1, LONG-TERM THERAPY
     Route: 048
     Dates: start: 2008
  12. VALSARTAN ABZ 80MG FILMTABLETTEN [Suspect]
     Active Substance: VALSARTAN
     Dosage: 40 MILLIGRAM DAILY; DAILY DOSE: 40MG TAKEN AS HALF OF A TABLET
     Route: 048
     Dates: start: 20160701, end: 20160728

REACTIONS (4)
  - Metastases to lung [Unknown]
  - Metastases to liver [Unknown]
  - Adenocarcinoma of colon [Unknown]
  - Product impurity [Recovered/Resolved]

NARRATIVE: CASE EVENT DATE: 201607
